FAERS Safety Report 13186199 (Version 1)
Quarter: 2017Q1

REPORT INFORMATION
  Report Type: Spontaneous
  Country: PH (occurrence: PH)
  Receive Date: 20170204
  Receipt Date: 20170204
  Transmission Date: 20170428
  Serious: Yes (Other)
  Sender: FDA-Public Use
  Company Number: PH-BRISTOL-MYERS SQUIBB COMPANY-BMS-2017-009015

PATIENT
  Age: 26 Year
  Sex: Male

DRUGS (1)
  1. ELIQUIS [Suspect]
     Active Substance: APIXABAN
     Indication: PRODUCT USED FOR UNKNOWN INDICATION
     Dosage: UNK
     Route: 065

REACTIONS (10)
  - Thrombocytopenia [Unknown]
  - Dengue fever [Unknown]
  - Pneumonia [Unknown]
  - Rash [Unknown]
  - Tachycardia [Unknown]
  - Dyspnoea [Unknown]
  - Cardiomegaly [Unknown]
  - Epistaxis [Unknown]
  - Hereditary motor and sensory neuropathy [Unknown]
  - Bedridden [Unknown]
